FAERS Safety Report 20067845 (Version 2)
Quarter: 2021Q4

REPORT INFORMATION
  Report Type: Spontaneous
  Country: DE (occurrence: DE)
  Receive Date: 20211115
  Receipt Date: 20211118
  Transmission Date: 20220303
  Serious: Yes (Other)
  Sender: FDA-Public Use
  Company Number: DE-ABBVIE-21K-062-4158697-00

PATIENT
  Sex: Female

DRUGS (5)
  1. VALPROIC ACID [Suspect]
     Active Substance: VALPROIC ACID
     Indication: Epilepsy
     Route: 065
     Dates: start: 20011231
  2. VALPROIC ACID [Suspect]
     Active Substance: VALPROIC ACID
     Dosage: MAXIMUM SINGLE DOSE: 1000 MG;
     Route: 065
     Dates: start: 2005
  3. CLOBAZAM [Suspect]
     Active Substance: CLOBAZAM
     Indication: Epilepsy
     Route: 065
     Dates: start: 20050525
  4. LEVETIRACETAM [Suspect]
     Active Substance: LEVETIRACETAM
     Indication: Epilepsy
     Route: 065
     Dates: start: 20050525
  5. LAMOTRIGINE [Concomitant]
     Active Substance: LAMOTRIGINE
     Indication: Product used for unknown indication
     Route: 065
     Dates: start: 20031231, end: 20050622

REACTIONS (5)
  - Pregnancy on contraceptive [Unknown]
  - Pregnancy with contraceptive device [Unknown]
  - Premature baby [Unknown]
  - Caesarean section [Unknown]
  - Maternal exposure during pregnancy [Unknown]

NARRATIVE: CASE EVENT DATE: 20050528
